FAERS Safety Report 5030569-8 (Version None)
Quarter: 2006Q2

REPORT INFORMATION
  Report Type: 
  Country: None (occurrence: None)
  Receive Date: 20060615
  Receipt Date: 20060606
  Transmission Date: 20061013
  Serious: Yes (Hospitalization)
  Sender: FDA-Public Use
  Company Number: 2006-06-0361

PATIENT
  Age: 59 Year
  Sex: Male
  Weight: 96.6162 kg

DRUGS (6)
  1. PEG-INTRON [Suspect]
     Indication: HEPATITIS C
     Dosage: SUBCUTANEOUS
     Route: 058
     Dates: start: 20050710
  2. RIBAVIRIN [Suspect]
     Indication: HEPATITIS C
     Dosage: ORAL
     Route: 048
     Dates: start: 20050710, end: 20060531
  3. LOTREL [Concomitant]
  4. MULTIVITAMIN [Concomitant]
  5. NASONEX [Concomitant]
  6. TYLENOL (CAPLET) [Concomitant]

REACTIONS (10)
  - ANAEMIA [None]
  - BLOOD PRESSURE FLUCTUATION [None]
  - DIZZINESS [None]
  - FATIGUE [None]
  - HYPOAESTHESIA [None]
  - INJECTION SITE ERYTHEMA [None]
  - SPINAL DISORDER [None]
  - ULNAR NERVE INJURY [None]
  - WEIGHT DECREASED [None]
  - WHITE BLOOD CELL COUNT DECREASED [None]
